FAERS Safety Report 8242237-X (Version None)
Quarter: 2012Q1

REPORT INFORMATION
  Report Type: 
  Country: None (occurrence: None)
  Receive Date: 20120314
  Receipt Date: 20110727
  Transmission Date: 20120608
  Serious: Yes (Other)
  Sender: FDA-Public Use
  Company Number: PHHY2011US68184

PATIENT
  Age: 22 Year
  Sex: Female

DRUGS (7)
  1. CLONIDINE [Suspect]
     Dosage: 0.1 MG, BID
  2. ZANTAC [Concomitant]
  3. MIRALAX [Suspect]
  4. NEXIUM [Concomitant]
  5. FANAPT [Suspect]
     Dosage: 12 MG, BID
  6. PRILOSEC [Suspect]
     Dosage: 40 MG, BID
  7. SEROQUEL [Suspect]
     Dosage: 100 MG, BID

REACTIONS (4)
  - HEART RATE INCREASED [None]
  - MUSCULOSKELETAL STIFFNESS [None]
  - BLOOD PRESSURE INCREASED [None]
  - FEELING ABNORMAL [None]
